FAERS Safety Report 15861346 (Version 1)
Quarter: 2019Q1

REPORT INFORMATION
  Report Type: Spontaneous
  Country: US (occurrence: US)
  Receive Date: 20190124
  Receipt Date: 20190124
  Transmission Date: 20190417
  Serious: Yes (Hospitalization)
  Sender: FDA-Public Use
  Company Number: US-BRISTOL-MYERS SQUIBB COMPANY-BMS-2019-004679

PATIENT
  Age: 62 Year
  Sex: Male
  Weight: 53.5 kg

DRUGS (2)
  1. IPILIMUMAB [Suspect]
     Active Substance: IPILIMUMAB
     Indication: SQUAMOUS CELL CARCINOMA OF THE TONGUE
     Dosage: 54 MG, UNK
     Route: 042
     Dates: start: 20181221
  2. NIVOLUMAB [Suspect]
     Active Substance: NIVOLUMAB
     Indication: SQUAMOUS CELL CARCINOMA OF THE TONGUE
     Dosage: 161 MG, Q2WK
     Route: 042
     Dates: start: 20181221, end: 20190103

REACTIONS (2)
  - Arterial thrombosis [Unknown]
  - Adverse event [Unknown]
